FAERS Safety Report 8869869 (Version 1)
Quarter: 2012Q4

REPORT INFORMATION
  Report Type: Spontaneous
  Country: US (occurrence: None)
  Receive Date: 20121025
  Receipt Date: 20121025
  Transmission Date: 20130627
  Serious: Yes (Other)
  Sender: FDA-Public Use
  Company Number: None

PATIENT
  Sex: Female
  Weight: 78.93 kg

DRUGS (2)
  1. LAMOTRIGINE [Suspect]
     Indication: MOOD DISORDER NOS
     Dosage: 2 tabs twice daily po
     Route: 048
     Dates: start: 20120926, end: 20121020
  2. LAMOTRIGINE [Suspect]
     Indication: ANGER
     Dosage: 2 tabs twice daily po
     Route: 048
     Dates: start: 20120926, end: 20121020

REACTIONS (6)
  - Eye pruritus [None]
  - Viral infection [None]
  - Rash [None]
  - Eye swelling [None]
  - Oral mucosal blistering [None]
  - Vaginal mucosal blistering [None]
